FAERS Safety Report 7585540-9 (Version None)
Quarter: 2011Q3

REPORT INFORMATION
  Report Type: 
  Country: None (occurrence: None)
  Receive Date: 20110701
  Receipt Date: 20110621
  Transmission Date: 20111222
  Serious: Yes (Other)
  Sender: FDA-Public Use
  Company Number: US-BAYER-2011-041188

PATIENT
  Age: 74 Year
  Sex: Male

DRUGS (3)
  1. SORAFENIB (RAF KINASE INHIBITOR) [Suspect]
     Indication: HEPATIC NEOPLASM MALIGNANT
     Dosage: 1 DF, BID
     Dates: start: 20110429, end: 20110101
  2. SORAFENIB (RAF KINASE INHIBITOR) [Suspect]
     Dosage: DECREASED DOSE
     Dates: start: 20110101, end: 20110620
  3. ANTIHYPERTENSIVES [Concomitant]
     Indication: HYPERTENSION

REACTIONS (7)
  - PULMONARY THROMBOSIS [None]
  - INTERNATIONAL NORMALISED RATIO INCREASED [None]
  - FATIGUE [None]
  - DIARRHOEA [None]
  - PAIN [None]
  - WEIGHT DECREASED [None]
  - DYSGEUSIA [None]
